FAERS Safety Report 4532022-4 (Version None)
Quarter: 2004Q4

REPORT INFORMATION
  Report Type: 
  Country: None (occurrence: None)
  Receive Date: 20041220
  Receipt Date: 20041207
  Transmission Date: 20050328
  Serious: Yes (Other)
  Sender: FDA-Public Use
  Company Number: 2004/02747

PATIENT
  Age: 28 Year
  Sex: Female

DRUGS (1)
  1. ZYBAN [Suspect]

REACTIONS (7)
  - CRYING [None]
  - DEPRESSION [None]
  - INSOMNIA [None]
  - PALPITATIONS [None]
  - PANIC REACTION [None]
  - SUICIDAL IDEATION [None]
  - THINKING ABNORMAL [None]
